FAERS Safety Report 18428155 (Version 1)
Quarter: 2020Q4

REPORT INFORMATION
  Report Type: Spontaneous
  Country: BR (occurrence: BR)
  Receive Date: 20201026
  Receipt Date: 20201026
  Transmission Date: 20210114
  Serious: Yes (Death, Other)
  Sender: FDA-Public Use
  Company Number: BR-AMGEN-BRASP2020170410

PATIENT
  Age: 3 Year
  Sex: Female

DRUGS (5)
  1. FILGRASTIM [Suspect]
     Active Substance: FILGRASTIM
     Indication: PRODUCT USED FOR UNKNOWN INDICATION
     Dosage: UNK
     Route: 065
  2. CYTARABINE. [Concomitant]
     Active Substance: CYTARABINE
     Indication: ACUTE MONOCYTIC LEUKAEMIA (IN REMISSION)
     Dosage: UNK UNK, CYCLICAL
  3. IDARUBICIN [Concomitant]
     Active Substance: IDARUBICIN
     Indication: ACUTE MONOCYTIC LEUKAEMIA (IN REMISSION)
     Dosage: UNK UNK, CYCLICAL
     Route: 065
  4. ETOPOSIDE. [Concomitant]
     Active Substance: ETOPOSIDE
     Indication: ACUTE MONOCYTIC LEUKAEMIA (IN REMISSION)
     Dosage: UNK UNK, CYCLICAL
     Route: 065
  5. FLUDARABINE [Concomitant]
     Active Substance: FLUDARABINE PHOSPHATE
     Indication: ACUTE MONOCYTIC LEUKAEMIA (IN REMISSION)
     Dosage: UNK UNK, CYCLICAL
     Route: 065

REACTIONS (5)
  - Acute monocytic leukaemia [Fatal]
  - Palpitations [Unknown]
  - Pyrexia [Unknown]
  - Klebsiella infection [Fatal]
  - Neutropenia [Unknown]
